FAERS Safety Report 19166758 (Version 1)
Quarter: 2021Q2

REPORT INFORMATION
  Report Type: Report from Study
  Country: TR (occurrence: TR)
  Receive Date: 20210422
  Receipt Date: 20210422
  Transmission Date: 20210717
  Serious: Yes (Other)
  Sender: FDA-Public Use
  Company Number: TR-EMD SERONO-9232718

PATIENT
  Age: 8 Year
  Sex: Female

DRUGS (2)
  1. SAIZEN [Suspect]
     Active Substance: SOMATROPIN
     Indication: PRODUCT USED FOR UNKNOWN INDICATION
     Route: 058
     Dates: start: 20190425
  2. SAIZEN [Suspect]
     Active Substance: SOMATROPIN
     Dosage: DOSE RESTARTED
     Route: 058

REACTIONS (1)
  - Jaw operation [Unknown]
